FAERS Safety Report 20111009 (Version 1)
Quarter: 2021Q4

REPORT INFORMATION
  Report Type: Spontaneous
  Country: NG (occurrence: NG)
  Receive Date: 20211125
  Receipt Date: 20211125
  Transmission Date: 20220303
  Serious: Yes (Congenital Anomaly, Other)
  Sender: FDA-Public Use
  Company Number: None

PATIENT
  Sex: Female
  Weight: 2.6 kg

DRUGS (1)
  1. LEVONORGESTREL [Suspect]
     Active Substance: LEVONORGESTREL
     Indication: Product used for unknown indication
     Dosage: UNK
     Route: 064

REACTIONS (5)
  - Teratogenicity [Unknown]
  - Limb deformity [Unknown]
  - Thrombocytopenia-absent radius syndrome [Unknown]
  - Haematocrit decreased [Unknown]
  - Foetal exposure during pregnancy [Unknown]
